FAERS Safety Report 7370356-9 (Version None)
Quarter: 2011Q1

REPORT INFORMATION
  Report Type: 
  Country: None (occurrence: None)
  Receive Date: 20110323
  Receipt Date: 20110315
  Transmission Date: 20110831
  Serious: Yes (Death)
  Sender: FDA-Public Use
  Company Number: US-GENENTECH-315272

PATIENT
  Age: 90 Year
  Sex: Female

DRUGS (3)
  1. RASBURICASE [Suspect]
     Indication: PRODUCT USED FOR UNKNOWN INDICATION
     Dosage: UNK
     Dates: start: 20110301, end: 20110301
  2. RITUXAN [Suspect]
     Indication: CHRONIC LYMPHOCYTIC LEUKAEMIA
     Dosage: UNK
     Dates: start: 20110301, end: 20110301
  3. BENDAMUSTINE [Suspect]
     Indication: CHRONIC LYMPHOCYTIC LEUKAEMIA
     Dosage: UNK
     Dates: start: 20110301, end: 20110301

REACTIONS (1)
  - DEATH [None]
